FAERS Safety Report 12118364 (Version 2)
Quarter: 2016Q1

REPORT INFORMATION
  Report Type: Spontaneous
  Country: DE (occurrence: DE)
  Receive Date: 20160226
  Receipt Date: 20160302
  Transmission Date: 20160526
  Serious: Yes (Other)
  Sender: FDA-Public Use
  Company Number: DE-SUN PHARMACEUTICAL INDUSTRIES LTD-2016R1-112155

PATIENT
  Age: 14 Day
  Sex: Male
  Weight: .9 kg

DRUGS (1)
  1. FLUCONAZOLE. [Suspect]
     Active Substance: FLUCONAZOLE
     Indication: CANDIDA INFECTION
     Dosage: 5 MG, QOD
     Route: 042
     Dates: start: 20151227

REACTIONS (2)
  - Accidental overdose [Recovered/Resolved]
  - Dose calculation error [Recovered/Resolved]

NARRATIVE: CASE EVENT DATE: 20151227
